FAERS Safety Report 5964513-3 (Version None)
Quarter: 2008Q4

REPORT INFORMATION
  Report Type: 
  Country: None (occurrence: None)
  Receive Date: 20081125
  Receipt Date: 20081118
  Transmission Date: 20090506
  Serious: Yes (Other)
  Sender: FDA-Public Use
  Company Number: JP-JNJFOC-20081103881

PATIENT
  Age: 79 Year
  Sex: Male

DRUGS (1)
  1. DUROTEP PATCH [Suspect]
     Indication: PAIN MANAGEMENT
     Route: 062

REACTIONS (3)
  - HEPATIC FUNCTION ABNORMAL [None]
  - SOMNOLENCE [None]
  - STEVENS-JOHNSON SYNDROME [None]
